FAERS Safety Report 22074271 (Version 2)
Quarter: 2023Q1

REPORT INFORMATION
  Report Type: Spontaneous
  Country: JP (occurrence: None)
  Receive Date: 20230308
  Receipt Date: 20230324
  Transmission Date: 20230418
  Serious: Yes (Hospitalization, Other)
  Sender: FDA-Public Use
  Company Number: 2023A044092

PATIENT
  Age: 76 Year
  Sex: Female

DRUGS (2)
  1. ONDEXXYA [Suspect]
     Active Substance: ANDEXANET ALFA
     Indication: Cerebral haemorrhage
     Dosage: 400 MG IV AT A RATE OF 30 MG/MIN, FOLLOWED BY 480MG IV AT A RATE OF 4 MG/MIN FOR 2 HOURS880.0MG U...
     Route: 042
     Dates: start: 20230210
  2. XARELTO [Concomitant]
     Active Substance: RIVAROXABAN
     Indication: Ischaemic stroke
     Route: 048

REACTIONS (4)
  - Peripheral artery thrombosis [Not Recovered/Not Resolved]
  - Atrioventricular block [Unknown]
  - Cerebral infarction [Not Recovered/Not Resolved]
  - Cardiac arrest [Unknown]

NARRATIVE: CASE EVENT DATE: 20230211
